FAERS Safety Report 10086772 (Version 1)
Quarter: 2014Q2

REPORT INFORMATION
  Report Type: Spontaneous
  Country: US (occurrence: US)
  Receive Date: 20140418
  Receipt Date: 20140418
  Transmission Date: 20141212
  Serious: No
  Sender: FDA-Public Use
  Company Number: US-ENDO PHARMACEUTICALS INC.-HYDR20130007

PATIENT
  Sex: Male

DRUGS (2)
  1. HYDROCORTISONE CREAM .025 [Suspect]
     Indication: RASH ERYTHEMATOUS
     Dosage: UNK
     Route: 061
  2. LIDODERM [Concomitant]
     Indication: PRODUCT USED FOR UNKNOWN INDICATION
     Dosage: UNK
     Route: 061

REACTIONS (1)
  - Application site pain [Not Recovered/Not Resolved]
